FAERS Safety Report 9215505 (Version 2)
Quarter: 2013Q2

REPORT INFORMATION
  Report Type: Spontaneous
  Country: DE (occurrence: DE)
  Receive Date: 20130406
  Receipt Date: 20130412
  Transmission Date: 20140414
  Serious: Yes (Hospitalization)
  Sender: FDA-Public Use
  Company Number: DE-B.I. PHARMACEUTICALS,INC./RIDGEFIELD-2013-DE-00989DE

PATIENT
  Age: 76 Year
  Sex: Female
  Weight: 63.4 kg

DRUGS (6)
  1. PRADAXA [Suspect]
     Indication: THROMBOSIS PROPHYLAXIS
     Dosage: 2X100MG
     Route: 048
     Dates: end: 20121116
  2. INDOMETACIN [Concomitant]
     Indication: ANALGESIC THERAPY
     Dosage: 3X25MG
     Route: 048
     Dates: end: 20120924
  3. METAMIZOL [Concomitant]
     Indication: ANALGESIC THERAPY
     Dosage: 3-4X500MG
     Route: 048
  4. TRAMADOL [Concomitant]
     Indication: ANALGESIC THERAPY
     Dosage: 2X100MG
     Route: 048
     Dates: end: 20120924
  5. SULTAMICILLIN [Concomitant]
     Indication: INFECTION PROPHYLAXIS
     Dosage: 3X375MG
     Route: 048
  6. RIFAMPICIN [Concomitant]
     Dosage: 2X300MG
     Route: 048

REACTIONS (4)
  - Dysarthria [Recovered/Resolved]
  - Headache [Recovered/Resolved]
  - Hemiparesis [Recovered/Resolved]
  - Malaise [Recovered/Resolved]
